FAERS Safety Report 7114643-8 (Version None)
Quarter: 2010Q4

REPORT INFORMATION
  Report Type: 
  Country: None (occurrence: None)
  Receive Date: 20101122
  Receipt Date: 20101115
  Transmission Date: 20110411
  Serious: Yes (Hospitalization)
  Sender: FDA-Public Use
  Company Number: US-AMGEN-TCS434681

PATIENT

DRUGS (8)
  1. ENBREL [Suspect]
     Indication: RHEUMATOID ARTHRITIS
     Dosage: 50 MG, QWK
     Route: 058
     Dates: start: 20100823
  2. METHOTREXATE [Concomitant]
     Indication: RHEUMATOID ARTHRITIS
     Dosage: 0.7 UNK, QWK
     Route: 058
  3. FOLIC ACID [Concomitant]
     Dosage: 2 MG, QD
  4. HUMIRA [Concomitant]
     Indication: ARTHRITIS
  5. NEXIUM [Concomitant]
     Indication: GASTROOESOPHAGEAL REFLUX DISEASE
  6. ZOLPIDEM [Concomitant]
     Indication: SLEEP DISORDER
  7. IBUPROFEN [Concomitant]
     Indication: DISCOMFORT
  8. YAZ                                /01502501/ [Concomitant]
     Indication: ENDOMETRIOSIS

REACTIONS (8)
  - ARTHRITIS [None]
  - ARTHROPATHY [None]
  - CREPITATIONS [None]
  - DIZZINESS [None]
  - GASTRIC BYPASS [None]
  - HEAD DISCOMFORT [None]
  - NAUSEA [None]
  - VERTIGO [None]
